FAERS Safety Report 8826047 (Version 1)
Quarter: 2012Q4

REPORT INFORMATION
  Report Type: 
  Country: JP (occurrence: JP)
  Receive Date: 20121005
  Receipt Date: 20121005
  Transmission Date: 20130627
  Serious: Yes (Other)
  Sender: FDA-Public Use
  Company Number: JP-ROXANE LABORATORIES, INC.-2012-RO-01939RO

PATIENT
  Age: 15 Year
  Sex: Female

DRUGS (2)
  1. CLARITHROMYCIN [Suspect]
     Indication: OSTEITIS
  2. GRACEVIT [Suspect]
     Indication: OSTEITIS
     Dosage: 100 mg

REACTIONS (1)
  - Drug eruption [Unknown]
